FAERS Safety Report 6097340-X (Version None)
Quarter: 2009Q1

REPORT INFORMATION
  Report Type: 
  Country: None (occurrence: None)
  Receive Date: 20090226
  Receipt Date: 20090226
  Transmission Date: 20090719
  Serious: No
  Sender: FDA-Public Use
  Company Number: None

PATIENT
  Age: 38 Year
  Sex: Female
  Weight: 90.7194 kg

DRUGS (1)
  1. LEVETIRACETAM [Suspect]
     Indication: EPILEPSY
     Dosage: 2 BID PO
     Route: 048
     Dates: start: 20081210, end: 20090204

REACTIONS (2)
  - ALOPECIA [None]
  - PRODUCT QUALITY ISSUE [None]
